FAERS Safety Report 9192952 (Version 1)
Quarter: 2013Q1

REPORT INFORMATION
  Report Type: Spontaneous
  Country: US (occurrence: None)
  Receive Date: 20120703
  Receipt Date: 20120703
  Transmission Date: 20140127
  Serious: Yes (Other)
  Sender: FDA-Public Use
  Company Number: PHEH2012US006880

PATIENT
  Age: 48 Year
  Sex: Female

DRUGS (9)
  1. GILENYA (FTY) CAPSULE, 0.5MG [Suspect]
     Indication: MULTIPLE SCLEROSIS
     Route: 048
     Dates: start: 20110411
  2. LEVOXYL (LEVOTHYROXINE SODIUM) [Concomitant]
  3. PROVIGIL (MODAFINIL) [Concomitant]
  4. CELEXA (CITALOPRAM HYDROBROMIDE) [Concomitant]
  5. LYRICA (PREGABALIN) [Concomitant]
  6. PREVACID (LANSOPRAZOLE) [Concomitant]
  7. VESICARE (SOLIFENACIN) [Concomitant]
  8. OSCAL (CALCIUM CARBONATE) [Concomitant]
  9. BYSTOLIC (NEBIVOLOL HYDROCHLORIDE) [Concomitant]

REACTIONS (2)
  - Oral herpes [None]
  - Rash [None]
